FAERS Safety Report 24970247 (Version 1)
Quarter: 2025Q1

REPORT INFORMATION
  Report Type: Spontaneous
  Country: US (occurrence: None)
  Receive Date: 20250213
  Receipt Date: 20250213
  Transmission Date: 20250409
  Serious: Yes (Other)
  Sender: FDA-CTU
  Company Number: None

PATIENT
  Age: 80 Year
  Sex: Male
  Weight: 98.5 kg

DRUGS (1)
  1. VANCOMYCIN HYDROCHLORIDE [Suspect]
     Active Substance: VANCOMYCIN HYDROCHLORIDE
     Indication: Erythema
     Route: 042
     Dates: start: 20250203, end: 20250203

REACTIONS (6)
  - Infusion related reaction [None]
  - Head discomfort [None]
  - Pruritus [None]
  - Flushing [None]
  - Dialysis [None]
  - Drug hypersensitivity [None]

NARRATIVE: CASE EVENT DATE: 20250203
